FAERS Safety Report 4651643-1 (Version None)
Quarter: 2005Q2

REPORT INFORMATION
  Report Type: 
  Country: None (occurrence: None)
  Receive Date: 20050404
  Receipt Date: 20041103
  Transmission Date: 20051028
  Serious: No
  Sender: FDA-Public Use
  Company Number: USA041183158

PATIENT
  Age: 36 Year
  Sex: Female
  Weight: 94 kg

DRUGS (2)
  1. CYMBALTA [Suspect]
     Indication: PSYCHOTIC DISORDER
     Dosage: 60 MG DAY
     Dates: start: 20041001
  2. GEODON [Concomitant]

REACTIONS (4)
  - ASTHMA [None]
  - COUGH [None]
  - DYSPNOEA [None]
  - VOMITING [None]
